FAERS Safety Report 9095558 (Version 1)
Quarter: 2013Q1

REPORT INFORMATION
  Report Type: Spontaneous
  Country: TR (occurrence: TR)
  Receive Date: 20130220
  Receipt Date: 20130220
  Transmission Date: 20140127
  Serious: Yes (Hospitalization)
  Sender: FDA-Public Use
  Company Number: PHHY2013TR001531

PATIENT
  Age: 38 Year
  Sex: Male

DRUGS (1)
  1. SANDOSTATIN LAR [Suspect]
     Indication: CARCINOID TUMOUR OF THE APPENDIX
     Dosage: 20 MG, ONCE EVERY 28 DAYS
     Route: 030

REACTIONS (2)
  - Adhesion [Recovered/Resolved]
  - Intestinal obstruction [Unknown]
